FAERS Safety Report 17463137 (Version 1)
Quarter: 2020Q1

REPORT INFORMATION
  Report Type: Report from Study
  Country: CO (occurrence: CO)
  Receive Date: 20200226
  Receipt Date: 20200226
  Transmission Date: 20200409
  Serious: Yes (Hospitalization)
  Sender: FDA-Public Use
  Company Number: CO-ROCHE-2529158

PATIENT
  Sex: Male

DRUGS (4)
  1. CELLCEPT [Suspect]
     Active Substance: MYCOPHENOLATE MOFETIL\MYCOPHENOLATE MOFETIL HYDROCHLORIDE
     Indication: PRODUCT USED FOR UNKNOWN INDICATION
     Route: 065
  2. TACROLIMUS. [Concomitant]
     Active Substance: TACROLIMUS
  3. TRIMETHOPRIM. [Concomitant]
     Active Substance: TRIMETHOPRIM
  4. EVEROLIMUS. [Concomitant]
     Active Substance: EVEROLIMUS

REACTIONS (2)
  - BK virus infection [Unknown]
  - Underweight [Unknown]
